FAERS Safety Report 16557325 (Version 2)
Quarter: 2020Q1

REPORT INFORMATION
  Report Type: Spontaneous
  Country: GB (occurrence: GB)
  Receive Date: 20190711
  Receipt Date: 20200217
  Transmission Date: 20200409
  Serious: Yes (Hospitalization)
  Sender: FDA-Public Use
  Company Number: GB-PFIZER INC-2019289003

PATIENT
  Age: 26 Year
  Sex: Male

DRUGS (9)
  1. BUSCOPAN [Concomitant]
     Active Substance: BUTYLSCOPOLAMINE BROMIDE
  2. OMEPRAZOLE. [Concomitant]
     Active Substance: OMEPRAZOLE
  3. COLECALCIFEROL [Concomitant]
     Active Substance: CHOLECALCIFEROL
  4. LOPERAMIDE [Concomitant]
     Active Substance: LOPERAMIDE
  5. XELJANZ [Suspect]
     Active Substance: TOFACITINIB CITRATE
     Indication: COLITIS ULCERATIVE
     Dosage: 10 MG, DAILY
     Route: 048
     Dates: start: 20190128, end: 20190606
  6. MOVICOL [Concomitant]
     Active Substance: POLYETHYLENE GLYCOL 3350\POTASSIUM CHLORIDE\SODIUM BICARBONATE\SODIUM CHLORIDE
  7. BETAHISTINE [Concomitant]
     Active Substance: BETAHISTINE
  8. BIDICLIN [Suspect]
     Active Substance: BECLOMETHASONE DIPROPIONATE
     Indication: COLITIS ULCERATIVE
     Dosage: 5 MG, UNSPECIFIED FREQUENCY
     Route: 048
     Dates: start: 20190530
  9. SALOFALK [MESALAZINE] [Suspect]
     Active Substance: MESALAMINE
     Indication: COLITIS ULCERATIVE
     Dosage: 3 G, UNSPECIFIED FREQUENCY
     Route: 048
     Dates: start: 20180817

REACTIONS (3)
  - Colitis [Recovered/Resolved]
  - Chest pain [Unknown]
  - Myocarditis [Recovering/Resolving]

NARRATIVE: CASE EVENT DATE: 20190606
